FAERS Safety Report 12531832 (Version 1)
Quarter: 2016Q3

REPORT INFORMATION
  Report Type: Spontaneous
  Country: BR (occurrence: BR)
  Receive Date: 20160706
  Receipt Date: 20160706
  Transmission Date: 20161109
  Serious: Yes (Other)
  Sender: FDA-Public Use
  Company Number: BR-BAYER-2016-126367

PATIENT
  Age: 32 Year
  Sex: Female
  Weight: 58 kg

DRUGS (9)
  1. AVALOX [Suspect]
     Active Substance: MOXIFLOXACIN HYDROCHLORIDE
     Indication: SINUSITIS
     Dosage: 400 MG, QD
     Route: 048
     Dates: start: 20160621
  2. METICORTEN [Concomitant]
     Active Substance: PREDNISONE
     Indication: SINUSITIS
     Dosage: 2 DF, QD
     Route: 048
     Dates: start: 20160621
  3. FOSTER [Concomitant]
     Active Substance: BECLOMETHASONE\FORMOTEROL
     Indication: SINUSITIS
     Dosage: 1 DF, BID
     Route: 045
     Dates: start: 20160621
  4. FOSTER [Concomitant]
     Active Substance: BECLOMETHASONE\FORMOTEROL
     Indication: COUGH
  5. AVALOX [Suspect]
     Active Substance: MOXIFLOXACIN HYDROCHLORIDE
     Indication: BRONCHITIS
  6. FOSTER [Concomitant]
     Active Substance: BECLOMETHASONE\FORMOTEROL
     Indication: BRONCHITIS
  7. METICORTEN [Concomitant]
     Active Substance: PREDNISONE
     Indication: BRONCHITIS
  8. METICORTEN [Concomitant]
     Active Substance: PREDNISONE
     Indication: COUGH
  9. AVALOX [Suspect]
     Active Substance: MOXIFLOXACIN HYDROCHLORIDE
     Indication: COUGH

REACTIONS (4)
  - Fine motor skill dysfunction [Not Recovered/Not Resolved]
  - Tremor [Not Recovered/Not Resolved]
  - Pain in extremity [Not Recovered/Not Resolved]
  - Muscular weakness [Not Recovered/Not Resolved]

NARRATIVE: CASE EVENT DATE: 20160621
